FAERS Safety Report 12540458 (Version 1)
Quarter: 2016Q3

REPORT INFORMATION
  Report Type: Spontaneous
  Country: US (occurrence: US)
  Receive Date: 20160708
  Receipt Date: 20160708
  Transmission Date: 20161109
  Serious: No
  Sender: FDA-Public Use
  Company Number: US-PFIZER INC-2016328390

PATIENT
  Age: 74 Year
  Sex: Female
  Weight: 92 kg

DRUGS (2)
  1. LYRICA [Suspect]
     Active Substance: PREGABALIN
     Indication: FIBROMYALGIA
     Dosage: UNK
     Dates: start: 2015
  2. LYRICA [Suspect]
     Active Substance: PREGABALIN
     Dosage: 50 MG, DAILY
     Dates: start: 2016

REACTIONS (8)
  - Gingival disorder [Unknown]
  - Peripheral swelling [Unknown]
  - Malaise [Unknown]
  - Tongue disorder [Unknown]
  - Intentional product misuse [Unknown]
  - Facial pain [Unknown]
  - Condition aggravated [Unknown]
  - Joint swelling [Unknown]
